FAERS Safety Report 11048176 (Version 1)
Quarter: 2015Q2

REPORT INFORMATION
  Report Type: Spontaneous
  Country: US (occurrence: None)
  Receive Date: 20150417
  Receipt Date: 20150417
  Transmission Date: 20150821
  Serious: Yes (Other)
  Sender: FDA-Public Use
  Company Number: None

PATIENT
  Age: 81 Year
  Sex: Male

DRUGS (8)
  1. MEMANTINE (NAMENDA) [Concomitant]
  2. DECADRON [Concomitant]
     Active Substance: DEXAMETHASONE
  3. FAMOTIDINE (PEPCID) [Concomitant]
  4. REVLIMID [Suspect]
     Active Substance: LENALIDOMIDE
     Indication: PLASMA CELL MYELOMA
     Dosage: X21D/28D
     Route: 048
     Dates: start: 201409
  5. FLUOXETINE (PROZAC) [Concomitant]
  6. ATORVASTATIN [Concomitant]
     Active Substance: ATORVASTATIN
  7. DONEPEZIL (ARICEPT) [Concomitant]
  8. MULTIVITAMIN (DAILY-VITE) [Concomitant]

REACTIONS (1)
  - Diarrhoea [None]

NARRATIVE: CASE EVENT DATE: 20150325
